FAERS Safety Report 8823886 (Version 1)
Quarter: 2012Q4

REPORT INFORMATION
  Report Type: 
  Country: US (occurrence: US)
  Receive Date: 20121003
  Receipt Date: 20121003
  Transmission Date: 20130627
  Serious: No
  Sender: FDA-Public Use
  Company Number: US-009507513-1209USA008455

PATIENT
  Age: 7 Year
  Sex: Male

DRUGS (1)
  1. DULERA [Suspect]
     Indication: ASTHMA
     Dosage: UNK
     Route: 055

REACTIONS (2)
  - Adrenal insufficiency [Unknown]
  - Drug administered to patient of inappropriate age [Unknown]
